FAERS Safety Report 6985224-1 (Version None)
Quarter: 2010Q3

REPORT INFORMATION
  Report Type: 
  Country: None (occurrence: None)
  Receive Date: 20100915
  Receipt Date: 20100912
  Transmission Date: 20110219
  Serious: Yes (Death)
  Sender: FDA-Public Use
  Company Number: IN-ROCHE-726655

PATIENT
  Age: 39 Year
  Sex: Male

DRUGS (4)
  1. TAMIFLU [Suspect]
     Indication: H1N1 INFLUENZA
     Route: 065
  2. STEROID NOS [Concomitant]
     Dosage: DRUG: STEROIDS.
  3. ANTIBIOTIC NOS [Concomitant]
     Dosage: DRUG: ANTIBIOTICS.
  4. INTRAVENOUS SOLUTION NOS/POTASSIUM [Concomitant]
     Dosage: DRUG: IV FLUIDS.

REACTIONS (4)
  - ACUTE RESPIRATORY DISTRESS SYNDROME [None]
  - BRONCHOPNEUMONIA [None]
  - CARDIO-RESPIRATORY ARREST [None]
  - H1N1 INFLUENZA [None]
